FAERS Safety Report 19739573 (Version 1)
Quarter: 2021Q3

REPORT INFORMATION
  Report Type: Spontaneous
  Country: CA (occurrence: CA)
  Receive Date: 20210824
  Receipt Date: 20210824
  Transmission Date: 20211014
  Serious: Yes (Other)
  Sender: FDA-Public Use
  Company Number: CA-TEVA-2021-CA-1943825

PATIENT
  Age: 65 Year
  Sex: Male

DRUGS (3)
  1. TEVA?DUTASTERIDE SOFT GELATIN CAPSULE [Suspect]
     Active Substance: DUTASTERIDE
     Indication: PROSTATOMEGALY
     Route: 048
  2. XARELTO [Concomitant]
     Active Substance: RIVAROXABAN
  3. VERAPAMIL HCL [Concomitant]
     Active Substance: VERAPAMIL HYDROCHLORIDE

REACTIONS (3)
  - Deafness [Recovered/Resolved]
  - Hallucination, auditory [Recovered/Resolved]
  - Auditory disorder [Recovered/Resolved]
